FAERS Safety Report 5465890-2 (Version None)
Quarter: 2007Q3

REPORT INFORMATION
  Report Type: 
  Country: None (occurrence: None)
  Receive Date: 20070924
  Receipt Date: 20070920
  Transmission Date: 20080115
  Serious: Yes (Death)
  Sender: FDA-Public Use
  Company Number: JP-ASTRAZENECA-2007AP05455

PATIENT
  Age: 84 Year
  Sex: Male

DRUGS (1)
  1. ZOLADEX [Suspect]
     Indication: PROSTATE CANCER
     Route: 058
     Dates: start: 20070625, end: 20070724

REACTIONS (2)
  - HEPATIC FUNCTION ABNORMAL [None]
  - OEDEMA PERIPHERAL [None]
